FAERS Safety Report 8397021-3 (Version None)
Quarter: 2012Q2

REPORT INFORMATION
  Report Type: 
  Country: None (occurrence: None)
  Receive Date: 20120530
  Receipt Date: 20120527
  Transmission Date: 20120825
  Serious: Yes (Death, Hospitalization)
  Sender: FDA-Public Use
  Company Number: US-B.I. PHARMACEUTICALS,INC./RIDGEFIELD-2012-BP-09704BP

PATIENT
  Sex: Male

DRUGS (13)
  1. GLUCOPHAGE [Concomitant]
  2. LANTUS [Concomitant]
     Dosage: 24 U
     Route: 058
  3. PRADAXA [Suspect]
     Indication: ATRIAL FIBRILLATION
     Dosage: 300 MG
     Route: 048
     Dates: start: 20120301
  4. INSULIN [Concomitant]
     Dosage: 300 U
  5. LISINOPRIL [Concomitant]
     Dosage: 10 MG
     Route: 048
  6. LIPITOR [Concomitant]
     Dosage: 80 MG
     Route: 048
  7. ALDACTONE [Concomitant]
     Dosage: 25 MG
     Route: 048
  8. IMDUR [Concomitant]
     Dosage: 30 MG
     Route: 048
  9. GLIPIZIDE [Concomitant]
  10. ASPIRIN [Concomitant]
     Dosage: 81 MG
     Route: 048
  11. HUMALOG KWIKPEN [Concomitant]
     Route: 058
  12. VITAMIN D [Concomitant]
     Dosage: 1000 U
     Route: 048
  13. LOPRESSOR [Concomitant]
     Dosage: 100 MG
     Route: 048

REACTIONS (1)
  - UPPER GASTROINTESTINAL HAEMORRHAGE [None]
